FAERS Safety Report 4785567-6 (Version None)
Quarter: 2005Q4

REPORT INFORMATION
  Report Type: 
  Country: None (occurrence: None)
  Receive Date: 20051003
  Receipt Date: 20050418
  Transmission Date: 20060501
  Serious: Yes (Death)
  Sender: FDA-Public Use
  Company Number: 2005-UK-00523UK

PATIENT
  Age: 64 Year
  Sex: Female

DRUGS (9)
  1. AMOXICILLIN [Suspect]
     Route: 065
  2. ALBUTEROL SULFATE HFA [Suspect]
     Dosage: 5MG UNKNOWN
     Route: 065
  3. VENTODISKS [Suspect]
     Dosage: 400MCG FOUR TIMES PER DAY
     Route: 065
  4. SALMETEROL + FLUTICASONE [Suspect]
     Dosage: 2PUFF TWICE PER DAY
  5. ATROVENT [Suspect]
     Dosage: 2ML UNKNOWN
     Route: 065
  6. PREDNISOLONE [Suspect]
     Dosage: 5MG PER DAY
     Route: 048
  7. IBUPROFEN [Suspect]
     Dosage: 200MG THREE TIMES PER DAY
     Route: 048
  8. PHYLLOCONTIN [Suspect]
     Dosage: 225MG TWICE PER DAY
     Route: 065
  9. OXYGEN [Suspect]

REACTIONS (2)
  - BRONCHOPNEUMONIA [None]
  - EMPHYSEMA [None]
